FAERS Safety Report 26194157 (Version 1)
Quarter: 2025Q4

REPORT INFORMATION
  Report Type: Spontaneous
  Country: AR (occurrence: AR)
  Receive Date: 20251224
  Receipt Date: 20251224
  Transmission Date: 20260117
  Serious: Yes (Hospitalization)
  Sender: ABBVIE
  Company Number: AR-ABBVIE-6603246

PATIENT
  Age: 56 Year
  Sex: Female

DRUGS (4)
  1. MIRVETUXIMAB SORAVTANSINE-GYNX [Suspect]
     Active Substance: MIRVETUXIMAB SORAVTANSINE-GYNX
     Indication: Ovarian cancer
     Dosage: 1ST CYCLE
     Route: 042
  2. MIRVETUXIMAB SORAVTANSINE-GYNX [Suspect]
     Active Substance: MIRVETUXIMAB SORAVTANSINE-GYNX
     Indication: Ovarian cancer
     Dosage: 2ND CYCLE
     Route: 042
  3. MIRVETUXIMAB SORAVTANSINE-GYNX [Suspect]
     Active Substance: MIRVETUXIMAB SORAVTANSINE-GYNX
     Indication: Ovarian cancer
     Dosage: 3RD CYCLE
     Route: 042
  4. MIRVETUXIMAB SORAVTANSINE-GYNX [Suspect]
     Active Substance: MIRVETUXIMAB SORAVTANSINE-GYNX
     Indication: Ovarian cancer
     Dosage: 4TH CYCLE
     Route: 042

REACTIONS (2)
  - Pneumocystis jirovecii pneumonia [Unknown]
  - COVID-19 pneumonia [Unknown]
